FAERS Safety Report 21319306 (Version 1)
Quarter: 2022Q3

REPORT INFORMATION
  Report Type: Spontaneous
  Country: US (occurrence: US)
  Receive Date: 20220911
  Receipt Date: 20220911
  Transmission Date: 20221027
  Serious: Yes (Hospitalization)
  Sender: FDA-Public Use
  Company Number: US-SA-SAC20220902001124

PATIENT
  Sex: Female
  Weight: 63 kg

DRUGS (8)
  1. DUPIXENT [Suspect]
     Active Substance: DUPILUMAB
     Indication: Psoriasis
     Dosage: 300 MG, QOW
     Route: 058
     Dates: start: 20210601
  2. DUPIXENT [Suspect]
     Active Substance: DUPILUMAB
     Indication: Dermatitis atopic
  3. POTASSIUM [Concomitant]
     Active Substance: POTASSIUM
  4. .ALPHA.-TOCOPHEROL [Concomitant]
     Active Substance: .ALPHA.-TOCOPHEROL
     Dosage: 1000U
  5. VITAMIN D3 [Concomitant]
     Active Substance: CHOLECALCIFEROL
  6. INSULIN ASPART [Concomitant]
     Active Substance: INSULIN ASPART
  7. COSMETICS [Concomitant]
     Active Substance: COSMETICS
  8. MAGNESIUM [Concomitant]
     Active Substance: MAGNESIUM

REACTIONS (3)
  - Hospitalisation [Not Recovered/Not Resolved]
  - Blood pressure abnormal [Unknown]
  - Product use in unapproved indication [Unknown]

NARRATIVE: CASE EVENT DATE: 20210601
